FAERS Safety Report 9471284 (Version 1)
Quarter: 2013Q3

REPORT INFORMATION
  Report Type: Spontaneous
  Country: US (occurrence: US)
  Receive Date: 20130822
  Receipt Date: 20130822
  Transmission Date: 20140515
  Serious: Yes (Other)
  Sender: FDA-Public Use
  Company Number: US-BAYER-2013-101196

PATIENT
  Sex: Male

DRUGS (1)
  1. PHILLIPS^ MILK OF MAGNESIA [Suspect]
     Route: 048

REACTIONS (1)
  - Drug dependence [None]
